FAERS Safety Report 9410514 (Version 1)
Quarter: 2013Q3

REPORT INFORMATION
  Report Type: Spontaneous
  Country: US (occurrence: US)
  Receive Date: 20130719
  Receipt Date: 20130719
  Transmission Date: 20140515
  Serious: Yes (Other)
  Sender: FDA-Public Use
  Company Number: US-ACTAVIS-2013-12253

PATIENT
  Age: 34 Year
  Sex: Female

DRUGS (2)
  1. GENTAMICIN SULFATE (UNKNOWN) [Suspect]
     Indication: URINARY TRACT INFECTION
     Dosage: UNK, MULTIPLE COURSES
     Route: 051
  2. GENTAMICIN SULFATE (UNKNOWN) [Suspect]
     Dosage: UNK,WEEKLY
     Route: 051

REACTIONS (1)
  - Pseudo-Bartter syndrome [Not Recovered/Not Resolved]
